FAERS Safety Report 18671919 (Version 2)
Quarter: 2021Q1

REPORT INFORMATION
  Report Type: Report from Study
  Country: GT (occurrence: GT)
  Receive Date: 20201229
  Receipt Date: 20210323
  Transmission Date: 20210419
  Serious: Yes (Other)
  Sender: FDA-Public Use
  Company Number: GT-EMD SERONO-9189045

PATIENT
  Age: 34 Year
  Sex: Male

DRUGS (1)
  1. REBIF [Suspect]
     Active Substance: INTERFERON BETA-1A
     Indication: MULTIPLE SCLEROSIS
     Route: 058
     Dates: start: 20181106

REACTIONS (8)
  - Headache [Unknown]
  - Pyrexia [Recovered/Resolved]
  - Stress [Recovering/Resolving]
  - Insomnia [Recovered/Resolved]
  - Vision blurred [Recovered/Resolved]
  - Dizziness [Recovered/Resolved]
  - Diabetes mellitus [Unknown]
  - Decreased interest [Recovering/Resolving]

NARRATIVE: CASE EVENT DATE: 202003
